FAERS Safety Report 5114655-X (Version None)
Quarter: 2006Q3

REPORT INFORMATION
  Report Type: 
  Country: None (occurrence: None)
  Receive Date: 20060926
  Receipt Date: 20060914
  Transmission Date: 20061208
  Serious: Yes (Death, Other)
  Sender: FDA-Public Use
  Company Number: US-JNJFOC-20041100151

PATIENT
  Sex: Male

DRUGS (9)
  1. REMICADE [Suspect]
     Indication: RHEUMATOID ARTHRITIS
     Route: 042
  2. PROCHLORPERAZINE [Concomitant]
  3. PROPOXYPHENE HYDROCHLORIDE [Concomitant]
  4. ALLOPURINOL [Concomitant]
  5. PREDNISONE TAB [Concomitant]
  6. FLOMAX [Concomitant]
  7. PRILOSEC [Concomitant]
  8. DOXEPIN [Concomitant]
  9. PRAVACHOL [Concomitant]

REACTIONS (2)
  - DEATH [None]
  - T-CELL LYMPHOMA [None]
